FAERS Safety Report 8162854-5 (Version None)
Quarter: 2012Q1

REPORT INFORMATION
  Report Type: 
  Country: None (occurrence: None)
  Receive Date: 20120224
  Receipt Date: 20120214
  Transmission Date: 20120608
  Serious: Yes (Hospitalization, Other)
  Sender: FDA-Public Use
  Company Number: JP-JNJFOC-20120106213

PATIENT
  Sex: Female
  Weight: 55 kg

DRUGS (12)
  1. REMICADE [Suspect]
     Route: 042
     Dates: start: 20111007
  2. REMICADE [Suspect]
     Indication: RHEUMATOID ARTHRITIS
     Dosage: 2ND DOSE
     Route: 042
     Dates: start: 20111021
  3. RHEUMATREX [Suspect]
     Indication: RHEUMATOID ARTHRITIS
     Route: 048
     Dates: start: 20111008, end: 20111219
  4. FOLIC ACID [Concomitant]
     Indication: RHEUMATOID ARTHRITIS
     Route: 048
     Dates: start: 20111010, end: 20111219
  5. DOXAZOSIN MESYLATE [Concomitant]
     Indication: HYPERTENSION
     Route: 048
  6. DEPAS [Concomitant]
     Indication: INSOMNIA
     Route: 048
  7. VOLTAREN-XR [Concomitant]
     Indication: RHEUMATOID ARTHRITIS
     Route: 048
  8. FAMOTIDINE [Concomitant]
     Indication: GASTRITIS
     Route: 048
  9. REBAMIPIDE [Concomitant]
     Indication: GASTRITIS
     Route: 048
  10. ENBREL [Concomitant]
     Route: 065
  11. REMICADE [Suspect]
     Dosage: 3RD DOSE
     Route: 042
     Dates: start: 20111118
  12. CANDESARTAN CILEXETIL [Concomitant]
     Indication: HYPERTENSION
     Route: 048

REACTIONS (3)
  - INTERSTITIAL LUNG DISEASE [None]
  - CARDIOMEGALY [None]
  - CARDIAC FAILURE [None]
